FAERS Safety Report 22061332 (Version 2)
Quarter: 2023Q2

REPORT INFORMATION
  Report Type: Spontaneous
  Country: US (occurrence: US)
  Receive Date: 20230304
  Receipt Date: 20230411
  Transmission Date: 20230721
  Serious: No
  Sender: FDA-Public Use
  Company Number: US-SANOFI-01512715

PATIENT
  Age: 58 Year
  Sex: Male
  Weight: 188.2 kg

DRUGS (1)
  1. LANTUS SOLOSTAR [Suspect]
     Active Substance: INSULIN GLARGINE
     Indication: Diabetes mellitus
     Dosage: 10 U, QD
     Route: 065

REACTIONS (2)
  - Discomfort [Unknown]
  - Product dispensing issue [Unknown]
